FAERS Safety Report 11317244 (Version 2)
Quarter: 2015Q3

REPORT INFORMATION
  Report Type: Spontaneous
  Country: US (occurrence: None)
  Receive Date: 20150727
  Receipt Date: 20150727
  Transmission Date: 20151125
  Serious: Yes (Disabling)
  Sender: FDA-Public Use
  Company Number: None

PATIENT
  Age: 42 Year
  Sex: Male
  Weight: 77.11 kg

DRUGS (10)
  1. MAGNESIUM [Concomitant]
     Active Substance: MAGNESIUM
  2. CIPROFLOXACIN. [Suspect]
     Active Substance: CIPROFLOXACIN
     Indication: URINARY TRACT INFECTION
     Dosage: 1 TABLET
     Route: 048
     Dates: start: 20150717, end: 20150719
  3. TUMERIC [Concomitant]
  4. ALBUTEROL. [Concomitant]
     Active Substance: ALBUTEROL
  5. IBUPROFEN. [Concomitant]
     Active Substance: IBUPROFEN
  6. FLONASE [Concomitant]
     Active Substance: FLUTICASONE PROPIONATE
  7. COSTCO MULTI VITAMIN [Concomitant]
  8. FISH OIL [Concomitant]
     Active Substance: FISH OIL
  9. ALPHA LIPOIC [Concomitant]
  10. FLOVENT [Concomitant]
     Active Substance: FLUTICASONE PROPIONATE

REACTIONS (3)
  - Neuralgia [None]
  - Pain in extremity [None]
  - Paraesthesia [None]

NARRATIVE: CASE EVENT DATE: 20150717
